FAERS Safety Report 4749761-2 (Version None)
Quarter: 2005Q3

REPORT INFORMATION
  Report Type: 
  Country: None (occurrence: None)
  Receive Date: 20050822
  Receipt Date: 20050810
  Transmission Date: 20060218
  Serious: Yes (Death, Hospitalization, Disabling, Other)
  Sender: FDA-Public Use
  Company Number: JP-BRISTOL-MYERS SQUIBB COMPANY-13074869

PATIENT
  Age: 70 Year
  Sex: Female

DRUGS (8)
  1. TAXOL [Suspect]
     Indication: UTERINE CANCER
     Route: 042
     Dates: start: 20040831, end: 20040927
  2. PARAPLATIN [Suspect]
     Indication: UTERINE CANCER
     Route: 042
     Dates: start: 20040831, end: 20040927
  3. DECADRON [Concomitant]
     Route: 041
     Dates: start: 20040831, end: 20040927
  4. ZANTAC [Concomitant]
     Route: 041
     Dates: start: 20040831, end: 20040927
  5. PANTOSIN [Concomitant]
     Route: 041
     Dates: start: 20040831, end: 20040927
  6. KYTRIL [Concomitant]
     Route: 041
     Dates: start: 20040831, end: 20040927
  7. GRAN [Concomitant]
     Dosage: DOSE UNIT = UG
     Route: 058
     Dates: start: 20041004, end: 20041006
  8. ROCEPHIN [Concomitant]
     Route: 041
     Dates: start: 20041004, end: 20041008

REACTIONS (10)
  - ABDOMINAL ABSCESS [None]
  - ANOREXIA [None]
  - DEHYDRATION [None]
  - FEBRILE NEUTROPENIA [None]
  - INFECTED CYST [None]
  - MALIGNANT NEOPLASM PROGRESSION [None]
  - PYREXIA [None]
  - SICK SINUS SYNDROME [None]
  - TACHYCARDIA PAROXYSMAL [None]
  - VENTRICULAR EXTRASYSTOLES [None]
